FAERS Safety Report 6020207-X (Version None)
Quarter: 2008Q4

REPORT INFORMATION
  Report Type: 
  Country: None (occurrence: None)
  Receive Date: 20081223
  Receipt Date: 20081223
  Transmission Date: 20090506
  Serious: No
  Sender: FDA-Public Use
  Company Number: None

PATIENT
  Sex: Female
  Weight: 83.9154 kg

DRUGS (15)
  1. BONIVA [Suspect]
     Indication: OSTEOPENIA
     Dosage: 3MG X1 IV BOLUS
     Route: 040
     Dates: start: 20081216, end: 20081216
  2. FEMARA [Concomitant]
  3. LYRICA [Concomitant]
  4. MORPHINE [Concomitant]
  5. CELEXA [Concomitant]
  6. ASCORBIC ACID [Concomitant]
  7. VITAMIN B6 [Concomitant]
  8. VITAMIN E [Concomitant]
  9. ASPIRIN [Concomitant]
  10. SUDAFED 12 HOUR [Concomitant]
  11. PRILOSEC [Concomitant]
  12. LASIX [Concomitant]
  13. RHINOCORT [Concomitant]
  14. OPTIVA [Concomitant]
  15. LEVOTHYROXINE [Concomitant]

REACTIONS (6)
  - ARTHRALGIA [None]
  - COLD SWEAT [None]
  - DIARRHOEA [None]
  - JOINT SWELLING [None]
  - MYALGIA [None]
  - PYREXIA [None]
